FAERS Safety Report 8028185-9 (Version None)
Quarter: 2012Q1

REPORT INFORMATION
  Report Type: 
  Country: None (occurrence: None)
  Receive Date: 20120106
  Receipt Date: 20120102
  Transmission Date: 20120608
  Serious: Yes (Other)
  Sender: FDA-Public Use
  Company Number: US-ABBOTT-12P-163-0889059-00

PATIENT
  Sex: Female

DRUGS (1)
  1. SYNTHROID [Suspect]
     Indication: PRODUCT USED FOR UNKNOWN INDICATION
     Dosage: ON AND OFF
     Dates: start: 20090101

REACTIONS (20)
  - MUSCLE SPASMS [None]
  - IRRITABILITY [None]
  - WEIGHT INCREASED [None]
  - NAUSEA [None]
  - TEMPERATURE INTOLERANCE [None]
  - CHEST DISCOMFORT [None]
  - RASH [None]
  - ALOPECIA [None]
  - SEIZURE LIKE PHENOMENA [None]
  - CHEST PAIN [None]
  - MIGRAINE [None]
  - NERVOUSNESS [None]
  - HAIR TEXTURE ABNORMAL [None]
  - ADVERSE DRUG REACTION [None]
  - DYSPNOEA [None]
  - INSOMNIA [None]
  - URTICARIA [None]
  - MUSCULAR WEAKNESS [None]
  - ACTIVITIES OF DAILY LIVING IMPAIRED [None]
  - HEART RATE IRREGULAR [None]
